FAERS Safety Report 9161964 (Version 2)
Quarter: 2014Q3

REPORT INFORMATION
  Report Type: Spontaneous
  Country: CA (occurrence: None)
  Receive Date: 20130225
  Receipt Date: 20140724
  Transmission Date: 20150326
  Serious: Yes (Hospitalization)
  Sender: FDA-Public Use
  Company Number: 2013-000433

PATIENT
  Age: 93 Year
  Sex: Female

DRUGS (26)
  1. ASPIRIN (ACETYLSALICYCLIC ACID) [Concomitant]
  2. LIPITOR [Concomitant]
     Active Substance: ATORVASTATIN CALCIUM
  3. GABAPENTIN (GABAPENTIN) [Concomitant]
     Active Substance: GABAPENTIN
  4. FLOVENT (FLUTICASONE PROPIONATE) [Concomitant]
  5. MAALOX?/00082501/ (ALUMINIUM HYDROXIDE, MAGNESIUM HYDROXIDE) [Concomitant]
  6. CALCIUM (CALCIUM) [Concomitant]
     Active Substance: CALCIUM
  7. ACETAMINOPHEN. [Concomitant]
     Active Substance: ACETAMINOPHEN
  8. ATROVENT (IPRATROPIUM BROMIDE) [Concomitant]
  9. LACTAID (TILACTASE) [Concomitant]
  10. RAMIPRIL (RAMIPRIL) [Concomitant]
     Active Substance: RAMIPRIL
  11. METOPROLOL (METOPROLOL) [Concomitant]
     Active Substance: METOPROLOL
  12. PANTOLOC?/01263204/ (PANTOPRAZOLE SODIUM SESQUIHYDRATE) [Concomitant]
  13. LEVOTHYROXINE (LEVOTHYROXINE) [Concomitant]
     Active Substance: LEVOTHYROXINE
  14. VITAMIN B12?/00056201/ (CYANOCOBALAMIN) [Concomitant]
  15. LACTULOSE (LACTULOSE) [Concomitant]
  16. MULTIVIT (VITAMINS NOS) [Concomitant]
  17. VITAMIN C?/00008001/ (ASCORBIC ACID) [Concomitant]
  18. ACTONEL [Suspect]
     Active Substance: RISEDRONATE SODIUM
     Indication: OSTEOPOROSIS
     Dosage: 35 MG ONCE WEEKLY, ORAL
     Route: 048
     Dates: start: 1998, end: 201301
  19. COLACE [Concomitant]
     Active Substance: DOCUSATE SODIUM
  20. COD LIVER OIL (COD-LIVER OIL) [Concomitant]
  21. SENOKOT?/00142201/ (SENNA ALEXANDRINA) [Concomitant]
  22. PAXIL (PAROXETINE HYDROCHLORIDE) [Concomitant]
  23. VENTOLIN?/00139501/ (SALBUTAMOL) [Concomitant]
  24. FUROSEMIDE (FUROSEMIDE) [Concomitant]
     Active Substance: FUROSEMIDE
  25. TAMOXIFEN [Suspect]
     Active Substance: TAMOXIFEN
  26. HYDROMORPHONE (HYDROMORPHONE) [Concomitant]
     Active Substance: HYDROMORPHONE

REACTIONS (7)
  - Influenza [None]
  - Sciatica [None]
  - Condition aggravated [None]
  - Pain in extremity [None]
  - Osteopenia [None]
  - Cardiac failure congestive [None]
  - Pneumonia [None]

NARRATIVE: CASE EVENT DATE: 2011
